FAERS Safety Report 10270946 (Version 2)
Quarter: 2014Q3

REPORT INFORMATION
  Report Type: Spontaneous
  Country: US (occurrence: None)
  Receive Date: 20140627
  Receipt Date: 20140711
  Transmission Date: 20150326
  Serious: Yes (Other)
  Sender: FDA-Public Use
  Company Number: ADR-2011-10788

PATIENT
  Age: 71 Year
  Sex: Female
  Weight: 68.04 kg

DRUGS (12)
  1. ALPHA LIPOIC ACID [Suspect]
     Active Substance: .ALPHA.-LIPOIC ACID
  2. COZAAR [Suspect]
     Active Substance: LOSARTAN POTASSIUM
  3. METFORMIN [Suspect]
     Active Substance: METFORMIN HYDROCHLORIDE
  4. BACLOFEN. [Suspect]
     Active Substance: BACLOFEN
     Indication: MUSCLE SPASTICITY
     Dosage: SEE B5
     Dates: start: 20110111
  5. ASPIRIN. [Suspect]
     Active Substance: ASPIRIN
  6. COQ10 [Suspect]
     Active Substance: UBIDECARENONE
  7. MULTIVITAMIN [Suspect]
     Active Substance: VITAMINS
     Dosage: 1
  8. VALIUM [Suspect]
     Active Substance: DIAZEPAM
     Dosage: EVERY 8 HOURS
  9. MILK THISTLE [Suspect]
     Active Substance: MILK THISTLE
  10. TENORMIN [Suspect]
     Active Substance: ATENOLOL
  11. CHROMIUM [Suspect]
     Active Substance: CHROMIC CHLORIDE\CHROMIUM
  12. OMEGA-3 FATTY ACIDS [Suspect]
     Active Substance: OMEGA-3 FATTY ACIDS
     Dosage: 3 TIMES A DAY

REACTIONS (33)
  - Hemiparesis [None]
  - Neck pain [None]
  - Hypoaesthesia [None]
  - Gait disturbance [None]
  - Bursitis [None]
  - Drug ineffective [None]
  - Constipation [None]
  - Medical device discomfort [None]
  - Muscle spasms [None]
  - Decreased appetite [None]
  - Pollakiuria [None]
  - Blood pressure systolic increased [None]
  - Muscular weakness [None]
  - Musculoskeletal stiffness [None]
  - Abdominal pain upper [None]
  - Hip fracture [None]
  - Asthenia [None]
  - Muscle contracture [None]
  - Depression [None]
  - Fall [None]
  - Joint stiffness [None]
  - Sensory disturbance [None]
  - Paraesthesia [None]
  - Medical device pain [None]
  - Arthralgia [None]
  - Dry skin [None]
  - Periarthritis [None]
  - Tendonitis [None]
  - Thirst [None]
  - Musculoskeletal pain [None]
  - Vision blurred [None]
  - Myalgia [None]
  - Device dislocation [None]

NARRATIVE: CASE EVENT DATE: 20110111
